FAERS Safety Report 6093710-4 (Version None)
Quarter: 2009Q1

REPORT INFORMATION
  Report Type: 
  Country: None (occurrence: None)
  Receive Date: 20090226
  Receipt Date: 20090219
  Transmission Date: 20090719
  Serious: Yes (Hospitalization, Other)
  Sender: FDA-Public Use
  Company Number: JP-ABBOTT-09P-087-0497760-00

PATIENT
  Sex: Male

DRUGS (11)
  1. HUMIRA [Suspect]
     Indication: RHEUMATOID ARTHRITIS
     Route: 058
     Dates: start: 20080922, end: 20081229
  2. METHOTREXATE [Concomitant]
     Indication: RHEUMATOID ARTHRITIS
  3. PREDNISOLONE [Concomitant]
     Indication: RHEUMATOID ARTHRITIS
     Route: 048
  4. BROTIZOLAM [Concomitant]
     Indication: INSOMNIA
     Route: 048
  5. BROTIZOLAM [Concomitant]
     Indication: PROPHYLAXIS
  6. RABEPRAZOLE SODIUM [Concomitant]
     Indication: GASTRITIS PROPHYLAXIS
     Route: 048
  7. ALENDRONATE SODIUM [Concomitant]
     Indication: OSTEOPOROSIS PROPHYLAXIS
     Dosage: WEEKLY
     Route: 048
  8. POLAPREZINC [Concomitant]
     Indication: GASTRITIS PROPHYLAXIS
     Route: 048
  9. PRECIPITATED CALCIUM CARBONATE [Concomitant]
     Indication: GASTRITIS PROPHYLAXIS
     Route: 048
  10. LORNOXICAM [Concomitant]
     Indication: RHEUMATOID ARTHRITIS
     Route: 048
  11. DICLOFENAC SODIUM [Concomitant]
     Indication: RHEUMATOID ARTHRITIS
     Route: 048

REACTIONS (3)
  - METASTASES TO LYMPH NODES [None]
  - SWOLLEN TONGUE [None]
  - TONGUE NEOPLASM MALIGNANT STAGE UNSPECIFIED [None]
